FAERS Safety Report 20721526 (Version 1)
Quarter: 2022Q2

REPORT INFORMATION
  Report Type: Spontaneous
  Country: US (occurrence: US)
  Receive Date: 20220418
  Receipt Date: 20220418
  Transmission Date: 20220721
  Serious: No
  Sender: FDA-Public Use
  Company Number: US-PFIZER INC-2020369964

PATIENT
  Age: 50 Year
  Sex: Female

DRUGS (2)
  1. ESTRING [Suspect]
     Active Substance: ESTRADIOL
     Indication: Menopause
     Dosage: 1 DF, MONTHLY(1 EA (EACH). MONTH - #3 VAGINALLY/1 EACH VAGINAL Q (EVERY) 3MONTH)
     Route: 067
  2. ESTRING [Suspect]
     Active Substance: ESTRADIOL
     Dosage: 1 EACH VAGINAL Q3MONTH
     Route: 067
     Dates: start: 20211103

REACTIONS (3)
  - Pain [Unknown]
  - Off label use [Unknown]
  - Product use issue [Unknown]
